FAERS Safety Report 20414537 (Version 1)
Quarter: 2022Q1

REPORT INFORMATION
  Report Type: Report from Study
  Country: JP (occurrence: JP)
  Receive Date: 20220202
  Receipt Date: 20220202
  Transmission Date: 20220423
  Serious: Yes (Other)
  Sender: FDA-Public Use
  Company Number: JP-UCBJ-CD202200711UCBPHAPROD

PATIENT
  Age: 49 Year
  Sex: Male
  Weight: 65.4 kg

DRUGS (17)
  1. LACOSAMIDE [Suspect]
     Active Substance: LACOSAMIDE
     Indication: Simple partial seizures
     Dosage: 50 MILLIGRAM, 2X/DAY (BID)
     Route: 048
     Dates: start: 20201103, end: 20201123
  2. LACOSAMIDE [Suspect]
     Active Substance: LACOSAMIDE
     Dosage: 100 MILLIGRAM, 2X/DAY (BID)
     Route: 048
     Dates: start: 20201124, end: 20210505
  3. LACOSAMIDE [Suspect]
     Active Substance: LACOSAMIDE
     Dosage: 200 MILLIGRAM, 2X/DAY (BID)
     Route: 048
     Dates: start: 20210506
  4. FYCOMPA [Concomitant]
     Active Substance: PERAMPANEL
     Indication: Simple partial seizures
     Route: 048
     Dates: start: 20200628, end: 20210215
  5. FYCOMPA [Concomitant]
     Active Substance: PERAMPANEL
     Route: 048
     Dates: start: 20210216, end: 20210524
  6. FYCOMPA [Concomitant]
     Active Substance: PERAMPANEL
     Route: 048
     Dates: start: 20210525
  7. OLMESARTAN MEDOXOMIL [Concomitant]
     Active Substance: OLMESARTAN MEDOXOMIL
     Indication: Product used for unknown indication
     Route: 048
     Dates: start: 20200728, end: 20200810
  8. OLMESARTAN MEDOXOMIL [Concomitant]
     Active Substance: OLMESARTAN MEDOXOMIL
     Route: 048
     Dates: start: 20200811, end: 20210912
  9. OLMESARTAN MEDOXOMIL [Concomitant]
     Active Substance: OLMESARTAN MEDOXOMIL
     Route: 048
     Dates: start: 20210913
  10. TEMODAL [Concomitant]
     Active Substance: TEMOZOLOMIDE
     Indication: Product used for unknown indication
     Route: 048
     Dates: start: 20200923, end: 20201104
  11. TEMODAL [Concomitant]
     Active Substance: TEMOZOLOMIDE
     Route: 048
     Dates: start: 20201203, end: 20201208
  12. TEMODAL [Concomitant]
     Active Substance: TEMOZOLOMIDE
     Route: 048
     Dates: start: 20200202, end: 20200922
  13. RAMOSETRON HYDROCHLORIDE [Concomitant]
     Active Substance: RAMOSETRON HYDROCHLORIDE
     Indication: Product used for unknown indication
     Route: 048
     Dates: start: 20200923
  14. SENNOSIDE A [Concomitant]
     Active Substance: SENNOSIDE A
     Indication: Product used for unknown indication
     Route: 048
     Dates: start: 20201021, end: 20210719
  15. MAGNESIUM OXIDE [Concomitant]
     Active Substance: MAGNESIUM OXIDE
     Indication: Product used for unknown indication
     Route: 048
     Dates: start: 20200923, end: 20210215
  16. AMITIZA [Concomitant]
     Active Substance: LUBIPROSTONE
     Indication: Product used for unknown indication
     Route: 048
     Dates: start: 20200926
  17. TEGRETOL [Concomitant]
     Active Substance: CARBAMAZEPINE
     Indication: Simple partial seizures
     Route: 048
     Dates: start: 20210918

REACTIONS (1)
  - Partial seizures with secondary generalisation [Unknown]

NARRATIVE: CASE EVENT DATE: 20210503
